FAERS Safety Report 7702063-4 (Version None)
Quarter: 2011Q3

REPORT INFORMATION
  Report Type: 
  Country: None (occurrence: None)
  Receive Date: 20110822
  Receipt Date: 20110817
  Transmission Date: 20111222
  Serious: Yes (Hospitalization, Other)
  Sender: FDA-Public Use
  Company Number: US-PFIZER INC-2011190460

PATIENT
  Age: 17 Year
  Sex: Female

DRUGS (1)
  1. BENZONATATE [Suspect]
     Indication: SUICIDE ATTEMPT
     Dosage: UNK

REACTIONS (6)
  - INTENTIONAL OVERDOSE [None]
  - CONVULSION [None]
  - CARDIAC ARREST [None]
  - PYREXIA [None]
  - CONFABULATION [None]
  - BLINDNESS [None]
